FAERS Safety Report 9727834 (Version 5)
Quarter: 2014Q1

REPORT INFORMATION
  Report Type: Spontaneous
  Country: DE (occurrence: DE)
  Receive Date: 20131204
  Receipt Date: 20140225
  Transmission Date: 20141002
  Serious: Yes (Life-Threatening, Other)
  Sender: FDA-Public Use
  Company Number: DE-BEH-2013039121

PATIENT
  Age: 72 Year
  Sex: Male
  Weight: 85 kg

DRUGS (2)
  1. PRIVIGEN [Suspect]
     Indication: GUILLAIN-BARRE SYNDROME
     Dosage: 170 G IN TOTAL OF BOTH BATCHES
     Route: 042
     Dates: start: 20130819, end: 20130823
  2. PRIVIGEN [Suspect]
     Dosage: 170 G IN TOTAL OF BOTH BATCHES
     Route: 042
     Dates: start: 20130819, end: 20130823

REACTIONS (1)
  - Haemolysis [Recovered/Resolved]
